FAERS Safety Report 4616749-1 (Version None)
Quarter: 2005Q2

REPORT INFORMATION
  Report Type: 
  Country: None (occurrence: None)
  Receive Date: 20050311
  Receipt Date: 20041207
  Transmission Date: 20051028
  Serious: Yes (Death, Hospitalization)
  Sender: FDA-Public Use
  Company Number: 2004-00909

PATIENT
  Age: 70 Year
  Sex: Female
  Weight: 42.6 kg

DRUGS (8)
  1. VELCADE [Suspect]
     Indication: MULTIPLE MYELOMA
     Dosage: 1.80 MG, IV BOLUS
     Route: 040
     Dates: start: 20031024, end: 20031126
  2. THALIDOMIDE [Concomitant]
  3. TAMOXIFEN CITRATE [Concomitant]
  4. CAPTOPRIL [Concomitant]
  5. MORPHINE SULFATE [Concomitant]
  6. PERCOCET [Concomitant]
  7. MEGACE [Concomitant]
  8. PAXIL [Concomitant]

REACTIONS (3)
  - DIARRHOEA [None]
  - DISEASE PROGRESSION [None]
  - HYPOKALAEMIA [None]
